FAERS Safety Report 12742746 (Version 1)
Quarter: 2016Q3

REPORT INFORMATION
  Report Type: Spontaneous
  Country: JP (occurrence: JP)
  Receive Date: 20160914
  Receipt Date: 20160914
  Transmission Date: 20161109
  Serious: Yes (Hospitalization, Other)
  Sender: FDA-Public Use
  Company Number: JP-INDIVIOR LIMITED-INDV-092072-2016

PATIENT
  Sex: Female
  Weight: 36 kg

DRUGS (10)
  1. NESGEN [Concomitant]
     Indication: PRODUCT USED FOR UNKNOWN INDICATION
     Dosage: UNK, (TABLET)
     Route: 065
     Dates: start: 201102, end: 201207
  2. VONAFEC [Concomitant]
     Active Substance: DICLOFENAC SODIUM
     Indication: PRODUCT USED FOR UNKNOWN INDICATION
     Dosage: 12.5MG, UNK (SUPPOSITORY)
     Route: 065
     Dates: start: 201102, end: 201304
  3. ETICALM [Concomitant]
     Active Substance: ETIZOLAM
     Indication: PRODUCT USED FOR UNKNOWN INDICATION
     Dosage: UNK (TABLET)
     Route: 065
     Dates: start: 201102, end: 201306
  4. MAGMITT [Concomitant]
     Active Substance: MAGNESIUM OXIDE
     Indication: PRODUCT USED FOR UNKNOWN INDICATION
     Dosage: TABLET, UNK
     Route: 065
     Dates: start: 201102, end: 201110
  5. NEUROVITAN                         /00176001/ [Concomitant]
     Indication: PRODUCT USED FOR UNKNOWN INDICATION
     Dosage: TABLET, UNK
     Route: 065
     Dates: start: 201102, end: 201110
  6. LEPETAN [Suspect]
     Active Substance: BUPRENORPHINE HYDROCHLORIDE
     Dosage: 0.4 MG, QD
     Route: 054
     Dates: start: 20110228, end: 20111031
  7. SODIUM ALGINATE [Concomitant]
     Active Substance: SODIUM ALGINATE
     Indication: PRODUCT USED FOR UNKNOWN INDICATION
     Dosage: UNK
     Route: 065
     Dates: start: 201102, end: 201110
  8. LEPETAN [Suspect]
     Active Substance: BUPRENORPHINE HYDROCHLORIDE
     Indication: ARTHRALGIA
     Dosage: 0.2 MG, BID
     Route: 054
     Dates: start: 20110228, end: 20111031
  9. LEPETAN [Suspect]
     Active Substance: BUPRENORPHINE HYDROCHLORIDE
     Dosage: 0.4 MG, BID
     Route: 054
     Dates: start: 20111107
  10. RABEPRAZOLE [Concomitant]
     Active Substance: RABEPRAZOLE
     Indication: PRODUCT USED FOR UNKNOWN INDICATION
     Dosage: TABLET, 10 N/A
     Route: 065
     Dates: start: 201102, end: 20160730

REACTIONS (2)
  - Malnutrition [Unknown]
  - Drug dependence [Not Recovered/Not Resolved]
